FAERS Safety Report 6007448-2 (Version None)
Quarter: 2008Q4

REPORT INFORMATION
  Report Type: 
  Country: None (occurrence: None)
  Receive Date: 20081217
  Receipt Date: 20080610
  Transmission Date: 20090506
  Serious: No
  Sender: FDA-Public Use
  Company Number: US-ASTRAZENECA-2008UW08126

PATIENT
  Age: 877 Month
  Sex: Female
  Weight: 88.9 kg

DRUGS (5)
  1. CRESTOR [Suspect]
     Indication: BLOOD CHOLESTEROL INCREASED
     Route: 048
     Dates: start: 20080401, end: 20080401
  2. CRESTOR [Suspect]
     Route: 048
     Dates: start: 20080509
  3. AVALIDE [Concomitant]
  4. MULTI-VITAMIN [Concomitant]
  5. AVAPRO [Concomitant]

REACTIONS (3)
  - ARTHRALGIA [None]
  - LIVER FUNCTION TEST ABNORMAL [None]
  - PAIN IN EXTREMITY [None]
